FAERS Safety Report 9851966 (Version 3)
Quarter: 2014Q2

REPORT INFORMATION
  Report Type: Spontaneous
  Country: DE (occurrence: DE)
  Receive Date: 20140129
  Receipt Date: 20140513
  Transmission Date: 20141212
  Serious: Yes (Other)
  Sender: FDA-Public Use
  Company Number: DE-JNJFOC-20140112878

PATIENT
  Age: 79 Year
  Sex: Male

DRUGS (5)
  1. ZYTIGA [Suspect]
     Indication: PROSTATE CANCER METASTATIC
     Route: 048
     Dates: start: 201209
  2. PREDNISON [Concomitant]
     Indication: PROSTATE CANCER METASTATIC
     Route: 065
     Dates: start: 201209
  3. XGEVA [Concomitant]
     Indication: PROSTATE CANCER METASTATIC
     Dosage: 2 X 1
     Route: 065
     Dates: start: 201209
  4. OSSOFORTIN [Concomitant]
     Route: 065
     Dates: start: 201209
  5. ZOLADEX [Concomitant]
     Route: 065
     Dates: start: 2002

REACTIONS (1)
  - Squamous cell carcinoma [Not Recovered/Not Resolved]
